FAERS Safety Report 4979969-2 (Version None)
Quarter: 2006Q2

REPORT INFORMATION
  Report Type: 
  Country: None (occurrence: None)
  Receive Date: 20060421
  Receipt Date: 20050812
  Transmission Date: 20061013
  Serious: Yes (Hospitalization, Disabling, Other)
  Sender: FDA-Public Use
  Company Number: US-MERCK-0508USA02633

PATIENT
  Age: 77 Year
  Sex: Female
  Weight: 77 kg

DRUGS (7)
  1. VIOXX [Suspect]
     Indication: OSTEOARTHRITIS
     Route: 048
     Dates: start: 20010101, end: 20030601
  2. LIPITOR [Concomitant]
     Indication: HYPERCHOLESTEROLAEMIA
     Route: 065
     Dates: start: 19990101, end: 20000101
  3. TRANXENE [Concomitant]
     Indication: ANXIETY
     Route: 065
     Dates: start: 19990101
  4. SYNTHROID [Concomitant]
     Indication: HYPOTHYROIDISM
     Route: 065
  5. ZOLOFT [Concomitant]
     Indication: DEPRESSION
     Route: 065
     Dates: start: 19990101
  6. NORVASC [Concomitant]
     Route: 065
     Dates: start: 20010101, end: 20020101
  7. MOTRIN [Concomitant]
     Route: 065

REACTIONS (35)
  - ABDOMINAL DISTENSION [None]
  - ACTIVITIES OF DAILY LIVING IMPAIRED [None]
  - ANXIETY [None]
  - APHASIA [None]
  - ASTHENIA [None]
  - CARDIOVASCULAR DISORDER [None]
  - CEREBROVASCULAR ACCIDENT [None]
  - COLON INJURY [None]
  - CONVULSION [None]
  - DEEP VEIN THROMBOSIS [None]
  - DEPRESSION [None]
  - DIABETES MELLITUS [None]
  - FACIAL PALSY [None]
  - GASTROINTESTINAL DISORDER [None]
  - GASTROINTESTINAL HAEMORRHAGE [None]
  - GASTROINTESTINAL HYPOMOTILITY [None]
  - HEAD INJURY [None]
  - HEMIPLEGIA [None]
  - ILEUS [None]
  - INJURY [None]
  - JOINT RANGE OF MOTION DECREASED [None]
  - LIGAMENT INJURY [None]
  - LIMB INJURY [None]
  - MUSCLE INJURY [None]
  - MUSCULOSKELETAL STIFFNESS [None]
  - PAIN [None]
  - PERIPHERAL NERVE INJURY [None]
  - POST PROCEDURAL COMPLICATION [None]
  - RENAL FAILURE ACUTE [None]
  - SCAR [None]
  - SENSORY DISTURBANCE [None]
  - SWELLING [None]
  - TENDERNESS [None]
  - VASCULAR INJURY [None]
  - VOMITING [None]
